FAERS Safety Report 10374960 (Version 2)
Quarter: 2016Q2

REPORT INFORMATION
  Report Type: Spontaneous
  Country: US (occurrence: US)
  Receive Date: 20140811
  Receipt Date: 20160601
  Transmission Date: 20160815
  Serious: Yes (Hospitalization, Other)
  Sender: FDA-Public Use
  Company Number: US-JNJFOC-20140800366

PATIENT
  Age: 16 Year
  Sex: Male
  Weight: 63.5 kg

DRUGS (3)
  1. TYLENOL EXTRA STRENGTH [Suspect]
     Active Substance: ACETAMINOPHEN
     Indication: HEADACHE
     Dosage: APPROX. 4000 MG PER DAY
     Route: 065
     Dates: start: 20120725, end: 20120727
  2. PENICILLIN VK [Concomitant]
     Active Substance: PENICILLIN V POTASSIUM
     Indication: DENTAL CARE
     Route: 065
     Dates: start: 20120726
  3. TYLENOL EXTRA STRENGTH [Suspect]
     Active Substance: ACETAMINOPHEN
     Indication: SPORTS INJURY
     Dosage: APPROX. 4000 MG PER DAY
     Route: 065
     Dates: start: 20120725, end: 20120727

REACTIONS (2)
  - Acute hepatic failure [Recovering/Resolving]
  - Intentional overdose [Recovering/Resolving]

NARRATIVE: CASE EVENT DATE: 201207
